FAERS Safety Report 8823109 (Version 1)
Quarter: 2012Q4

REPORT INFORMATION
  Report Type: 
  Country: US (occurrence: US)
  Receive Date: 20121003
  Receipt Date: 20121003
  Transmission Date: 20130627
  Serious: Yes (Hospitalization)
  Sender: FDA-Public Use
  Company Number: US-ROCHE-1133991

PATIENT
  Sex: Male
  Weight: 65.83 kg

DRUGS (7)
  1. RITUXAN [Suspect]
     Indication: LYMPHOCYTIC LYMPHOMA
     Route: 065
     Dates: start: 20011012
  2. BENADRYL [Concomitant]
     Route: 065
     Dates: start: 20011021
  3. TYLENOL [Concomitant]
     Route: 048
     Dates: start: 20011021
  4. CYTOXAN [Concomitant]
     Route: 065
     Dates: start: 20010918
  5. VINCRISTINE [Concomitant]
     Route: 065
     Dates: start: 20010918
  6. PREDNISONE [Concomitant]
     Route: 065
     Dates: start: 20010918
  7. PROCRIT [Concomitant]
     Route: 065

REACTIONS (2)
  - Malnutrition [Unknown]
  - Depression [Recovering/Resolving]
